FAERS Safety Report 24729451 (Version 1)
Quarter: 2024Q4

REPORT INFORMATION
  Report Type: Spontaneous
  Country: US (occurrence: US)
  Receive Date: 20241213
  Receipt Date: 20241213
  Transmission Date: 20250115
  Serious: No
  Sender: ACCORD
  Company Number: US-Accord-408861

PATIENT
  Age: 53 Year
  Sex: Male

DRUGS (1)
  1. LEVOTHYROXINE [Suspect]
     Active Substance: LEVOTHYROXINE
     Indication: Graves^ disease
     Route: 048

REACTIONS (5)
  - Peripheral swelling [Unknown]
  - Hypoaesthesia [Unknown]
  - Pain in extremity [Unknown]
  - Erythema [Unknown]
  - Off label use [Unknown]
